FAERS Safety Report 20738930 (Version 2)
Quarter: 2022Q3

REPORT INFORMATION
  Report Type: Spontaneous
  Country: JP (occurrence: JP)
  Receive Date: 20220422
  Receipt Date: 20220905
  Transmission Date: 20221027
  Serious: Yes (Hospitalization, Other)
  Sender: FDA-Public Use
  Company Number: JP-NOVARTISPH-NVSJ2022JP003357

PATIENT
  Age: 25 Year
  Sex: Female
  Weight: 57 kg

DRUGS (26)
  1. ELTROMBOPAG OLAMINE [Suspect]
     Active Substance: ELTROMBOPAG OLAMINE
     Indication: Aplastic anaemia
     Dosage: 25 MG
     Route: 048
     Dates: start: 20200731
  2. ELTROMBOPAG OLAMINE [Suspect]
     Active Substance: ELTROMBOPAG OLAMINE
     Dosage: 50 MG
     Route: 048
     Dates: start: 20200821
  3. ELTROMBOPAG OLAMINE [Suspect]
     Active Substance: ELTROMBOPAG OLAMINE
     Dosage: 75 MG
     Route: 048
     Dates: start: 20200911
  4. ELTROMBOPAG OLAMINE [Suspect]
     Active Substance: ELTROMBOPAG OLAMINE
     Dosage: 37.5 MG
     Route: 048
     Dates: start: 20210122
  5. ELTROMBOPAG OLAMINE [Suspect]
     Active Substance: ELTROMBOPAG OLAMINE
     Dosage: 25 MG
     Route: 048
     Dates: start: 20210625
  6. ELTROMBOPAG OLAMINE [Suspect]
     Active Substance: ELTROMBOPAG OLAMINE
     Dosage: 12.5 MG
     Route: 048
     Dates: start: 20210709
  7. ELTROMBOPAG OLAMINE [Suspect]
     Active Substance: ELTROMBOPAG OLAMINE
     Dosage: 25 MG
     Route: 048
     Dates: start: 20211203
  8. ELTROMBOPAG OLAMINE [Suspect]
     Active Substance: ELTROMBOPAG OLAMINE
     Dosage: 37.5 MG
     Route: 048
     Dates: start: 20211224, end: 20220121
  9. ELTROMBOPAG OLAMINE [Suspect]
     Active Substance: ELTROMBOPAG OLAMINE
     Dosage: 25 MG
     Route: 048
  10. ELTROMBOPAG OLAMINE [Suspect]
     Active Substance: ELTROMBOPAG OLAMINE
     Dosage: 50 MG
     Route: 048
  11. CYCLOSPORINE [Concomitant]
     Active Substance: CYCLOSPORINE
     Indication: Aplastic anaemia
     Dosage: 250 MG
     Route: 065
     Dates: start: 201307
  12. CYCLOSPORINE [Concomitant]
     Active Substance: CYCLOSPORINE
     Dosage: 225 MG
     Route: 065
     Dates: start: 20130831
  13. CYCLOSPORINE [Concomitant]
     Active Substance: CYCLOSPORINE
     Dosage: 200 MG
     Route: 065
  14. CYCLOSPORINE [Concomitant]
     Active Substance: CYCLOSPORINE
     Dosage: 175 MG
     Route: 065
     Dates: start: 20130926
  15. CYCLOSPORINE [Concomitant]
     Active Substance: CYCLOSPORINE
     Dosage: 150 MG
     Route: 065
     Dates: start: 20140117
  16. CYCLOSPORINE [Concomitant]
     Active Substance: CYCLOSPORINE
     Dosage: 125 MG
     Route: 065
     Dates: start: 20140306
  17. CYCLOSPORINE [Concomitant]
     Active Substance: CYCLOSPORINE
     Dosage: 100 MG
     Route: 065
     Dates: start: 20140717
  18. CYCLOSPORINE [Concomitant]
     Active Substance: CYCLOSPORINE
     Dosage: 75 MG
     Route: 065
     Dates: start: 20141113
  19. CYCLOSPORINE [Concomitant]
     Active Substance: CYCLOSPORINE
     Dosage: 50 MG
     Route: 065
     Dates: start: 20150626
  20. CYCLOSPORINE [Concomitant]
     Active Substance: CYCLOSPORINE
     Dosage: 150 MG
     Route: 065
     Dates: start: 20191129
  21. CYCLOSPORINE [Concomitant]
     Active Substance: CYCLOSPORINE
     Dosage: 100 MG
     Route: 065
     Dates: start: 20191227
  22. CYCLOSPORINE [Concomitant]
     Active Substance: CYCLOSPORINE
     Dosage: 125 MG
     Route: 065
     Dates: start: 20200327
  23. CYCLOSPORINE [Concomitant]
     Active Substance: CYCLOSPORINE
     Dosage: 100 MG
     Route: 065
     Dates: start: 20200424
  24. CYCLOSPORINE [Concomitant]
     Active Substance: CYCLOSPORINE
     Dosage: 75 MG
     Route: 065
     Dates: start: 20200626
  25. CYCLOSPORINE [Concomitant]
     Active Substance: CYCLOSPORINE
     Dosage: 50 MG
     Route: 065
     Dates: start: 20201023
  26. CYCLOSPORINE [Concomitant]
     Active Substance: CYCLOSPORINE
     Dosage: 75 MG
     Route: 065

REACTIONS (10)
  - Premature delivery [Unknown]
  - Aplastic anaemia [Unknown]
  - Condition aggravated [Unknown]
  - Pancytopenia [Unknown]
  - Disease progression [Unknown]
  - Platelet count decreased [Unknown]
  - Paroxysmal nocturnal haemoglobinuria [Unknown]
  - Neutrophil count decreased [Unknown]
  - Blood bilirubin increased [Unknown]
  - Maternal exposure during pregnancy [Unknown]

NARRATIVE: CASE EVENT DATE: 20210622
